FAERS Safety Report 8791066 (Version 1)
Quarter: 2012Q4

REPORT INFORMATION
  Report Type: Spontaneous
  Country: US (occurrence: None)
  Receive Date: 20120921
  Receipt Date: 20120921
  Transmission Date: 20130627
  Serious: Yes (Other)
  Sender: FDA-Public Use
  Company Number: 2012033312

PATIENT
  Sex: Female

DRUGS (1)
  1. HIZENTRA [Suspect]
     Dosage: Taken in 2011 Subcutaneous
     Route: 058

REACTIONS (2)
  - Respiratory tract infection [None]
  - Influenza like illness [None]
